FAERS Safety Report 8142068-5 (Version None)
Quarter: 2012Q1

REPORT INFORMATION
  Report Type: 
  Country: None (occurrence: None)
  Receive Date: 20120216
  Receipt Date: 20120201
  Transmission Date: 20120608
  Serious: Yes (Other)
  Sender: FDA-Public Use
  Company Number: US-WATSON-2012-01853

PATIENT
  Age: 19 Year
  Sex: Female
  Weight: 70.295 kg

DRUGS (1)
  1. LEVONORGESTREL [Suspect]
     Indication: POST COITAL CONTRACEPTION
     Dosage: 1ST TABLET WITHIN 1HOUR AND 2ND TABLET 12 HOURS LATER
     Route: 048
     Dates: start: 20120127, end: 20120127

REACTIONS (5)
  - MENORRHAGIA [None]
  - LOSS OF CONSCIOUSNESS [None]
  - VAGINAL HAEMORRHAGE [None]
  - DIZZINESS [None]
  - NAUSEA [None]
